FAERS Safety Report 21028474 (Version 2)
Quarter: 2022Q3

REPORT INFORMATION
  Report Type: Spontaneous
  Country: US (occurrence: US)
  Receive Date: 20220630
  Receipt Date: 20220712
  Transmission Date: 20221026
  Serious: No
  Sender: FDA-Public Use
  Company Number: US-MYLANLABS-2022M1042542

PATIENT
  Sex: Female

DRUGS (1)
  1. YUPELRI [Suspect]
     Active Substance: REVEFENACIN
     Indication: Cough
     Dosage: UNK
     Route: 065
     Dates: start: 20220601

REACTIONS (3)
  - Off label use [Unknown]
  - Product use issue [Unknown]
  - Product quality issue [Unknown]
